FAERS Safety Report 5474835-0 (Version None)
Quarter: 2007Q4

REPORT INFORMATION
  Report Type: 
  Country: None (occurrence: None)
  Receive Date: 20071002
  Receipt Date: 20070925
  Transmission Date: 20080405
  Serious: Yes (Other)
  Sender: FDA-Public Use
  Company Number: NO-ASTRAZENECA-2007SE05162

PATIENT
  Age: 40 Year
  Sex: Female

DRUGS (1)
  1. NOLVADEX [Suspect]
     Indication: BREAST CANCER FEMALE

REACTIONS (3)
  - ENDOMETRIAL HYPERPLASIA [None]
  - HEPATIC NEOPLASM [None]
  - OVARIAN MASS [None]
